FAERS Safety Report 5020889-5 (Version None)
Quarter: 2006Q2

REPORT INFORMATION
  Report Type: 
  Country: None (occurrence: None)
  Receive Date: 20060608
  Receipt Date: 20060524
  Transmission Date: 20061013
  Serious: Yes (Death)
  Sender: FDA-Public Use
  Company Number: JP-AVENTIS-200611598JP

PATIENT
  Age: 74 Year
  Sex: Male

DRUGS (5)
  1. TAXOTERE [Suspect]
     Indication: GASTRIC CANCER
     Route: 041
     Dates: start: 20060317, end: 20060317
  2. TAXOTERE [Suspect]
     Route: 041
     Dates: start: 20060421, end: 20060421
  3. ZANTAC [Concomitant]
     Indication: PREMEDICATION
     Dosage: DOSE: 1 AMPULE
  4. SEROTONE [Concomitant]
     Indication: PREMEDICATION
     Dosage: DOSE: 1 AMPULE
  5. DECADRON [Concomitant]
     Indication: PREMEDICATION
     Dosage: DOSE: 3 AMPLES

REACTIONS (12)
  - ALANINE AMINOTRANSFERASE INCREASED [None]
  - ASPARTATE AMINOTRANSFERASE INCREASED [None]
  - BLOOD PRESSURE DECREASED [None]
  - GASTRIC CANCER RECURRENT [None]
  - HAEMOLYTIC ANAEMIA [None]
  - HYPERKALAEMIA [None]
  - JAUNDICE [None]
  - MULTI-ORGAN FAILURE [None]
  - RENAL FAILURE [None]
  - RESPIRATORY ARREST [None]
  - SEPSIS [None]
  - VENTRICULAR FIBRILLATION [None]
